FAERS Safety Report 25178394 (Version 4)
Quarter: 2025Q3

REPORT INFORMATION
  Report Type: Spontaneous
  Country: US (occurrence: US)
  Receive Date: 20250409
  Receipt Date: 20250922
  Transmission Date: 20251020
  Serious: Yes (Other)
  Sender: BRISTOL-MYERS SQUIBB COMPANY
  Company Number: US-BRISTOL-MYERS SQUIBB COMPANY-2025-052637

PATIENT
  Age: 80 Year
  Sex: Female
  Weight: 49.9 kg

DRUGS (12)
  1. REVLIMID [Suspect]
     Active Substance: LENALIDOMIDE
     Indication: Plasma cell myeloma
  2. REVLIMID [Suspect]
     Active Substance: LENALIDOMIDE
     Dosage: ONCE DAILY FOR 3 WEEKS ON 1 WEEK OFF
  3. REVLIMID [Suspect]
     Active Substance: LENALIDOMIDE
     Dosage: TAKE 1 CAPSULE DAILY FOR 21 DAYS, THEN 7 DAYS OFF, EVERY 28 DAY CYCLE
  4. ACYCLOVIR [Concomitant]
     Active Substance: ACYCLOVIR
     Indication: Product used for unknown indication
  5. ASPIRIN [Concomitant]
     Active Substance: ASPIRIN
     Indication: Product used for unknown indication
  6. CALCIUM [Concomitant]
     Active Substance: CALCIUM
     Indication: Product used for unknown indication
  7. EQL Vitamin D3 [Concomitant]
     Indication: Product used for unknown indication
  8. FAMOTIDINE [Concomitant]
     Active Substance: FAMOTIDINE
     Indication: Product used for unknown indication
  9. GABAPENTIN [Concomitant]
     Active Substance: GABAPENTIN
     Indication: Product used for unknown indication
  10. LISINOPRIL [Concomitant]
     Active Substance: LISINOPRIL
     Indication: Product used for unknown indication
  11. LOPERAMIDE [Concomitant]
     Active Substance: LOPERAMIDE
     Indication: Product used for unknown indication
  12. METAMUCIL SMOOTH TEXTURE [Concomitant]
     Indication: Product used for unknown indication

REACTIONS (4)
  - Diarrhoea [Not Recovered/Not Resolved]
  - Full blood count abnormal [Recovering/Resolving]
  - Neuropathy peripheral [Not Recovered/Not Resolved]
  - Breast cancer [Not Recovered/Not Resolved]
